FAERS Safety Report 12241724 (Version 2)
Quarter: 2016Q3

REPORT INFORMATION
  Report Type: Spontaneous
  Country: DE (occurrence: DE)
  Receive Date: 20160406
  Receipt Date: 20160729
  Transmission Date: 20161109
  Serious: Yes (Disabling, Congenital Anomaly)
  Sender: FDA-Public Use
  Company Number: DE-WATSON-2016-07155

PATIENT
  Sex: Female
  Weight: 4.1 kg

DRUGS (3)
  1. CITALOPRAM [Suspect]
     Active Substance: CITALOPRAM HYDROBROMIDE
     Indication: OBSESSIVE-COMPULSIVE DISORDER
     Dosage: 40 MG, DAILY
     Route: 064
     Dates: end: 20160203
  2. AMPICILLIN (UNKNOWN) [Suspect]
     Active Substance: AMPICILLIN
     Indication: URINARY TRACT INFECTION
     Dosage: UNK
     Route: 064
     Dates: start: 201509
  3. FLUOMIZIN [Suspect]
     Active Substance: DEQUALINIUM CHLORIDE
     Indication: URINARY TRACT INFECTION
     Dosage: UNK
     Route: 064
     Dates: start: 201509

REACTIONS (2)
  - Ventricular septal defect [Unknown]
  - Maternal exposure during pregnancy [Unknown]

NARRATIVE: CASE EVENT DATE: 20160203
